FAERS Safety Report 4599628-8 (Version None)
Quarter: 2005Q1

REPORT INFORMATION
  Report Type: 
  Country: None (occurrence: None)
  Receive Date: 20050303
  Receipt Date: 20050303
  Transmission Date: 20050727
  Serious: Yes (Other)
  Sender: FDA-Public Use
  Company Number: None

PATIENT
  Sex: Male
  Weight: 172.3669 kg

DRUGS (4)
  1. SNEEZEZE NASALESE (EUROPHARMA) [Suspect]
     Indication: HYPERSENSITIVITY
     Dosage: 2-3 SPRAYS EACH NOSTRIL DAILY
     Route: 045
     Dates: start: 20050201
  2. SNEEZEZE NASALESE (EUROPHARMA) [Suspect]
     Indication: SEASONAL ALLERGY
     Dosage: 2-3 SPRAYS EACH NOSTRIL DAILY
     Route: 045
     Dates: start: 20050201
  3. 4 WAY NASAL SPRAY ^FAST ACTING^ BRISTOL-MYERS SQUIBB CO [Suspect]
     Indication: HYPERSENSITIVITY
     Dosage: 1-2 SPRAYS IN NOSE OCCASIONALLY
     Route: 045
     Dates: start: 20051201
  4. 4 WAY NASAL SPRAY ^FAST ACTING^ BRISTOL-MYERS SQUIBB CO [Suspect]
     Indication: RHINITIS
     Dosage: 1-2 SPRAYS IN NOSE OCCASIONALLY
     Route: 045
     Dates: start: 20051201

REACTIONS (3)
  - DRUG EFFECT DECREASED [None]
  - DRY MOUTH [None]
  - DRY THROAT [None]
